FAERS Safety Report 16409359 (Version 2)
Quarter: 2019Q3

REPORT INFORMATION
  Report Type: Spontaneous
  Country: US (occurrence: US)
  Receive Date: 20190610
  Receipt Date: 20190712
  Transmission Date: 20191004
  Serious: No
  Sender: FDA-Public Use
  Company Number: US-LEO PHARMA-319149

PATIENT
  Sex: Female

DRUGS (1)
  1. PICATO [Suspect]
     Active Substance: INGENOL MEBUTATE
     Indication: SKIN EXFOLIATION
     Route: 061
     Dates: start: 20190528, end: 20190529

REACTIONS (4)
  - Product storage error [Unknown]
  - Multiple use of single-use product [Unknown]
  - Application site vesicles [Not Recovered/Not Resolved]
  - Product use in unapproved indication [Unknown]
